FAERS Safety Report 22324845 (Version 1)
Quarter: 2023Q2

REPORT INFORMATION
  Report Type: Spontaneous
  Country: TW (occurrence: TW)
  Receive Date: 20230516
  Receipt Date: 20230516
  Transmission Date: 20230722
  Serious: Yes (Other)
  Sender: FDA-Public Use
  Company Number: TW-PFIZER INC-PV202300084358

PATIENT
  Age: 79 Year
  Sex: Female

DRUGS (4)
  1. VIZIMPRO [Suspect]
     Active Substance: DACOMITINIB
     Dosage: 30MG QD
     Dates: start: 20211222
  2. VIZIMPRO [Suspect]
     Active Substance: DACOMITINIB
     Dosage: 1# QOD
     Dates: start: 20220608
  3. VIZIMPRO [Suspect]
     Active Substance: DACOMITINIB
     Dosage: 1# Q3D
     Dates: start: 20220803
  4. VIZIMPRO [Suspect]
     Active Substance: DACOMITINIB
     Dosage: 1# QOD
     Dates: start: 20230310

REACTIONS (5)
  - Hepatitis [Unknown]
  - Dermatitis [Unknown]
  - Diarrhoea [Unknown]
  - Product use issue [Unknown]
  - Off label use [Unknown]
